FAERS Safety Report 14377486 (Version 2)
Quarter: 2018Q1

REPORT INFORMATION
  Report Type: Spontaneous
  Country: FI (occurrence: FI)
  Receive Date: 20180111
  Receipt Date: 20180228
  Transmission Date: 20180509
  Serious: Yes (Life-Threatening, Other)
  Sender: FDA-Public Use
  Company Number: FI-009507513-1801FIN003912

PATIENT
  Age: 64 Year
  Sex: Female

DRUGS (4)
  1. ALENDRONATE SODIUM. [Suspect]
     Active Substance: ALENDRONATE SODIUM
     Indication: OSTEOPOROSIS
     Dosage: 10 MG, QW
     Route: 048
     Dates: start: 20041202, end: 20060101
  2. CALCICHEW [Suspect]
     Active Substance: CALCIUM CARBONATE
     Indication: OSTEOPENIA
     Dates: start: 20000101, end: 20070101
  3. CANDESARTAN CILEXETIL. [Concomitant]
     Active Substance: CANDESARTAN CILEXETIL
     Indication: HYPERTENSION
     Dosage: 8 MG, QD
  4. KALCIPOS D [Suspect]
     Active Substance: CALCIUM CARBONATE\CHOLECALCIFEROL
     Indication: OSTEOPENIA
     Dates: start: 20000101, end: 20070101

REACTIONS (14)
  - Migraine [Recovering/Resolving]
  - Memory impairment [Recovering/Resolving]
  - Visual impairment [Recovering/Resolving]
  - Psoriasis [Recovering/Resolving]
  - Campylobacter infection [Recovering/Resolving]
  - Lyme disease [Recovering/Resolving]
  - Chills [Recovering/Resolving]
  - Sensation of foreign body [Recovering/Resolving]
  - Dyspnoea [Recovering/Resolving]
  - Skin disorder [Recovering/Resolving]
  - Suicidal ideation [Unknown]
  - Vertebrobasilar insufficiency [Recovering/Resolving]
  - Iron deficiency anaemia [Recovering/Resolving]
  - Movement disorder [Recovering/Resolving]

NARRATIVE: CASE EVENT DATE: 2006
